FAERS Safety Report 23138460 (Version 1)
Quarter: 2023Q4

REPORT INFORMATION
  Report Type: Spontaneous
  Country: US (occurrence: None)
  Receive Date: 20231101
  Receipt Date: 20231101
  Transmission Date: 20240109
  Serious: Yes (unspecified)
  Sender: FDA-Public Use
  Company Number: None

PATIENT
  Age: 50 Year
  Sex: Female
  Weight: 87.75 kg

DRUGS (6)
  1. LEADER ARTIFICIAL TEARS 15 ML [Suspect]
     Active Substance: POLYVINYL ALCOHOL\POVIDONE
     Indication: Eye irritation
     Dosage: OTHER QUANTITY : 2 DROP(S);?FREQUENCY : EVERY 6 HOURS;?
     Route: 047
     Dates: start: 20231025, end: 20231026
  2. NOVOLOG [Concomitant]
     Active Substance: INSULIN ASPART
  3. METFORMIN [Concomitant]
     Active Substance: METFORMIN HYDROCHLORIDE
  4. ASPIRIN [Concomitant]
     Active Substance: ASPIRIN
  5. ibersaten [Concomitant]
  6. LIPITOR [Concomitant]
     Active Substance: ATORVASTATIN CALCIUM

REACTIONS (4)
  - Lacrimation increased [None]
  - Visual impairment [None]
  - Depressed mood [None]
  - Vision blurred [None]

NARRATIVE: CASE EVENT DATE: 20231026
